FAERS Safety Report 16912000 (Version 8)
Quarter: 2020Q1

REPORT INFORMATION
  Report Type: Report from Study
  Country: US (occurrence: US)
  Receive Date: 20191014
  Receipt Date: 20200327
  Transmission Date: 20200409
  Serious: No
  Sender: FDA-Public Use
  Company Number: US-AMGEN-USASP2019167610

PATIENT
  Age: 71 Year
  Sex: Male
  Weight: 85 kg

DRUGS (1)
  1. ENBREL [Suspect]
     Active Substance: ETANERCEPT
     Indication: RHEUMATOID ARTHRITIS
     Dosage: 50 MILLIGRAM, QWK
     Route: 058
     Dates: start: 201607

REACTIONS (17)
  - Dermatitis [Not Recovered/Not Resolved]
  - Exfoliative rash [Not Recovered/Not Resolved]
  - Rash [Unknown]
  - Injection site rash [Not Recovered/Not Resolved]
  - Drug hypersensitivity [Unknown]
  - Injection site reaction [Unknown]
  - Therapeutic product effect incomplete [Recovering/Resolving]
  - Injection site eczema [Not Recovered/Not Resolved]
  - Condition aggravated [Unknown]
  - Rash pruritic [Not Recovered/Not Resolved]
  - Infection [Unknown]
  - Rash erythematous [Not Recovered/Not Resolved]
  - Pruritus [Unknown]
  - Injection site pruritus [Not Recovered/Not Resolved]
  - Rash papular [Not Recovered/Not Resolved]
  - Eczema [Not Recovered/Not Resolved]
  - Injection site swelling [Not Recovered/Not Resolved]

NARRATIVE: CASE EVENT DATE: 201803
